FAERS Safety Report 5560789-5 (Version None)
Quarter: 2007Q4

REPORT INFORMATION
  Report Type: 
  Country: None (occurrence: None)
  Receive Date: 20071215
  Receipt Date: 20071120
  Transmission Date: 20080405
  Serious: No
  Sender: FDA-Public Use
  Company Number: US-ABBOTT-07P-163-0425918-00

PATIENT
  Sex: Female

DRUGS (9)
  1. HUMIRA [Suspect]
     Indication: CROHN'S DISEASE
     Route: 058
     Dates: start: 20071119, end: 20071119
  2. HUMIRA [Suspect]
     Route: 058
  3. HUMIRA [Suspect]
     Route: 058
  4. CHANTIX [Concomitant]
     Indication: EX-SMOKER
  5. MERCAPURINE [Concomitant]
     Indication: CROHN'S DISEASE
  6. MESALAMINE [Concomitant]
     Indication: GASTROINTESTINAL DISORDER
  7. ESOMEPRAZOLE MAGNESIUM [Concomitant]
     Indication: GASTROOESOPHAGEAL REFLUX DISEASE
  8. BUPROPION HCL [Concomitant]
     Indication: DRUG USE FOR UNKNOWN INDICATION
  9. CLOPIDOGREL [Concomitant]
     Indication: CEREBROVASCULAR ACCIDENT

REACTIONS (1)
  - INJECTION SITE BRUISING [None]
